FAERS Safety Report 24778132 (Version 1)
Quarter: 2024Q4

REPORT INFORMATION
  Report Type: Spontaneous
  Country: US (occurrence: US)
  Receive Date: 20241226
  Receipt Date: 20241226
  Transmission Date: 20250115
  Serious: No
  Sender: PFIZER
  Company Number: US-PFIZER INC-202400330905

PATIENT
  Sex: Female

DRUGS (1)
  1. PROTONIX [Suspect]
     Active Substance: PANTOPRAZOLE SODIUM
     Indication: Erosive oesophagitis
     Dosage: 20 MG, DAILY
     Dates: start: 2022

REACTIONS (2)
  - Osteoporosis [Unknown]
  - Off label use [Unknown]
